FAERS Safety Report 25774160 (Version 1)
Quarter: 2025Q3

REPORT INFORMATION
  Report Type: Spontaneous
  Country: US (occurrence: US)
  Receive Date: 20250908
  Receipt Date: 20250908
  Transmission Date: 20251020
  Serious: Yes (Other)
  Sender: NOVO NORDISK
  Company Number: US-NOVOPROD-1510406

PATIENT
  Age: 66 Year
  Sex: Female

DRUGS (1)
  1. SEMAGLUTIDE [Suspect]
     Active Substance: SEMAGLUTIDE
     Indication: Product used for unknown indication
     Route: 058
     Dates: start: 202504, end: 202505

REACTIONS (2)
  - Surgery [Unknown]
  - Counterfeit product administered [Recovered/Resolved]

NARRATIVE: CASE EVENT DATE: 20250101
